FAERS Safety Report 9086950 (Version 1)
Quarter: 2013Q1

REPORT INFORMATION
  Report Type: Report from Study
  Country: US (occurrence: US)
  Receive Date: 20130131
  Receipt Date: 20130131
  Transmission Date: 20140127
  Serious: Yes (Other)
  Sender: FDA-Public Use
  Company Number: US-ABBOTT-12P-163-0962712-00

PATIENT
  Age: 46 None
  Sex: Female
  Weight: 90.8 kg

DRUGS (13)
  1. HUMIRA [Suspect]
     Indication: ANKYLOSING SPONDYLITIS
     Route: 058
     Dates: start: 200610
  2. HUMIRA [Suspect]
     Dosage: ON HOLD
     Route: 058
     Dates: start: 201103, end: 201207
  3. HUMIRA [Suspect]
     Dosage: QOW OR Q THREE WEEKS DEPENDING ON DOCTORS DIRECTION
  4. XYZAL [Concomitant]
     Indication: HYPERSENSITIVITY
  5. SINGULAIR [Concomitant]
     Indication: SINUS DISORDER
  6. FLUTICASONE [Concomitant]
     Indication: SINUS DISORDER
     Dosage: TWO SQUIRTS
  7. CITALOPRAM [Concomitant]
     Indication: DEPRESSION
  8. HYDROCODONE [Concomitant]
     Indication: PAIN IN EXTREMITY
     Dosage: 500 MG EVERY 6 HOURS AS NEEDED
     Dates: start: 20120725
  9. PENTASA [Concomitant]
     Indication: CROHN^S DISEASE
     Dosage: TAKES WHEN OFF HUMIRA
  10. MAX AIR INHALER [Concomitant]
     Indication: SINUS DISORDER
  11. MELATONIN [Concomitant]
     Indication: PRODUCT USED FOR UNKNOWN INDICATION
     Dosage: AT NIGHT
  12. MULTIVITAMIN [Concomitant]
     Indication: PRODUCT USED FOR UNKNOWN INDICATION
  13. CALCIUM [Concomitant]
     Indication: MINERAL SUPPLEMENTATION

REACTIONS (11)
  - Localised infection [Unknown]
  - Acne [Recovering/Resolving]
  - Acne [Unknown]
  - Increased tendency to bruise [Unknown]
  - Hypersensitivity [Unknown]
  - Depression [Unknown]
  - Crohn^s disease [Recovered/Resolved with Sequelae]
  - Infection [Recovering/Resolving]
  - Sinusitis [Unknown]
  - Injection site bruising [Recovered/Resolved]
  - Sinusitis [Recovered/Resolved]
